FAERS Safety Report 8444853-9 (Version None)
Quarter: 2012Q2

REPORT INFORMATION
  Report Type: 
  Country: None (occurrence: None)
  Receive Date: 20120618
  Receipt Date: 20120613
  Transmission Date: 20120825
  Serious: Yes (Hospitalization, Other)
  Sender: FDA-Public Use
  Company Number: PHHY2012CA018072

PATIENT
  Sex: Female

DRUGS (7)
  1. RAMIPRIL [Concomitant]
     Dosage: 25 MG, QD
  2. DIGOXIN [Concomitant]
     Dosage: 0.062 UKN, UNK
  3. ZOLEDRONOC ACID [Suspect]
     Indication: OSTEOPOROSIS POSTMENOPAUSAL
     Dosage: UNK UKN, YEARLY
     Route: 042
     Dates: start: 20110527
  4. ASPIRIN [Concomitant]
     Dosage: 80 UKN, QD
  5. ZAROXOLYN [Concomitant]
     Dosage: 2.5 MG, UNK
  6. DILTIAZEM HYDROCHOLORIDE [Concomitant]
     Dosage: 240 UKN, UNK
  7. ACETAMINOPHEN [Concomitant]
     Dosage: 500 UKN, BID

REACTIONS (2)
  - CEREBROVASCULAR ACCIDENT [None]
  - PNEUMONIA [None]
